FAERS Safety Report 25751134 (Version 1)
Quarter: 2025Q3

REPORT INFORMATION
  Report Type: Spontaneous
  Country: US (occurrence: None)
  Receive Date: 20250831
  Receipt Date: 20250831
  Transmission Date: 20251021
  Serious: Yes (Disabling)
  Sender: FDA-CTU
  Company Number: None

PATIENT
  Age: 62 Year
  Sex: Female
  Weight: 85.5 kg

DRUGS (5)
  1. LEXAPRO [Suspect]
     Active Substance: ESCITALOPRAM OXALATE
  2. FAMOTIDINE [Concomitant]
     Active Substance: FAMOTIDINE
  3. LOSARTAN [Concomitant]
     Active Substance: LOSARTAN
  4. CELEBREX [Concomitant]
     Active Substance: CELECOXIB
  5. ZYRTEC [Concomitant]
     Active Substance: CETIRIZINE HYDROCHLORIDE

REACTIONS (2)
  - Small fibre neuropathy [None]
  - Flat affect [None]

NARRATIVE: CASE EVENT DATE: 20241001
